FAERS Safety Report 15306213 (Version 5)
Quarter: 2019Q2

REPORT INFORMATION
  Report Type: Spontaneous
  Country: US (occurrence: US)
  Receive Date: 20180822
  Receipt Date: 20190520
  Transmission Date: 20190711
  Serious: No
  Sender: FDA-Public Use
  Company Number: US-PFIZER INC-2018236158

PATIENT
  Age: 51 Year
  Sex: Female

DRUGS (2)
  1. LYRICA [Suspect]
     Active Substance: PREGABALIN
     Dosage: 225 MG, 3X/DAY
  2. LYRICA [Suspect]
     Active Substance: PREGABALIN
     Indication: OSTEOARTHRITIS
     Dosage: 675 MG, DAILY [225 MG CAPSULE / QTY 90 / DAYS SUPPLY 30]

REACTIONS (4)
  - Product use in unapproved indication [Unknown]
  - Prescribed overdose [Unknown]
  - Pain [Unknown]
  - Off label use [Unknown]
